FAERS Safety Report 7885495-3 (Version None)
Quarter: 2011Q4

REPORT INFORMATION
  Report Type: 
  Country: None (occurrence: None)
  Receive Date: 20111102
  Receipt Date: 20111021
  Transmission Date: 20120403
  Serious: Yes (Hospitalization)
  Sender: FDA-Public Use
  Company Number: US-BAYER-2011-048369

PATIENT
  Age: 43 Year
  Sex: Female
  Weight: 83 kg

DRUGS (6)
  1. TYLENOL-500 [Concomitant]
  2. VICODIN [Concomitant]
  3. MOTRIN [Concomitant]
     Indication: HEADACHE
  4. YAZ [Suspect]
     Indication: ACNE
     Dosage: UNK
     Dates: start: 20070101, end: 20080101
  5. ADIPEX [Concomitant]
     Indication: OVERWEIGHT
     Dosage: UNK UNK, BID
  6. YAZ [Suspect]
     Indication: CONTRACEPTION

REACTIONS (7)
  - GALLBLADDER CHOLESTEROLOSIS [None]
  - CHOLECYSTITIS CHRONIC [None]
  - PAIN [None]
  - GALLBLADDER DISORDER [None]
  - CHOLELITHIASIS [None]
  - GASTROINTESTINAL DISORDER [None]
  - INJURY [None]
